FAERS Safety Report 7021212-7 (Version None)
Quarter: 2010Q3

REPORT INFORMATION
  Report Type: 
  Country: None (occurrence: None)
  Receive Date: 20100929
  Receipt Date: 20100915
  Transmission Date: 20110219
  Serious: Yes (Other)
  Sender: FDA-Public Use
  Company Number: JP-PFIZER INC-2009234476

PATIENT
  Age: 66 Year
  Sex: Female
  Weight: 42 kg

DRUGS (3)
  1. ZOLOFT [Suspect]
     Indication: DEPRESSED MOOD
     Dosage: 100 MG, 1X/DAY
     Dates: start: 20080606
  2. LIMAS [Interacting]
     Indication: DEPRESSIVE SYMPTOM
     Dosage: 600 MG, UNK
  3. RIZE [Concomitant]

REACTIONS (4)
  - DEPRESSED MOOD [None]
  - DRUG INTERACTION [None]
  - PLEUROTHOTONUS [None]
  - SOMATOFORM DISORDER NEUROLOGIC [None]
